FAERS Safety Report 19479222 (Version 1)
Quarter: 2021Q2

REPORT INFORMATION
  Report Type: Report from Study
  Country: AT (occurrence: AT)
  Receive Date: 20210630
  Receipt Date: 20210630
  Transmission Date: 20210717
  Serious: Yes (Other)
  Sender: FDA-Public Use
  Company Number: NVSC2021AT144291

PATIENT
  Age: 37 Year
  Sex: Female

DRUGS (3)
  1. METFORMIN [Suspect]
     Active Substance: METFORMIN HYDROCHLORIDE
     Indication: TYPE 2 DIABETES MELLITUS
     Dosage: UNK
     Route: 065
  2. GALVUS [Suspect]
     Active Substance: VILDAGLIPTIN
     Indication: TYPE 2 DIABETES MELLITUS
     Dosage: UNK
     Route: 065
  3. EUCREAS [Suspect]
     Active Substance: METFORMIN HYDROCHLORIDE\VILDAGLIPTIN
     Indication: TYPE 2 DIABETES MELLITUS
     Dosage: UNK
     Route: 065

REACTIONS (16)
  - Hyperlipidaemia [Unknown]
  - Drug intolerance [Unknown]
  - Hypoglycaemia [Unknown]
  - Thirst [Unknown]
  - Paraesthesia [Unknown]
  - Hypoaesthesia [Unknown]
  - Anxiety [Unknown]
  - Sensory loss [Unknown]
  - Device difficult to use [Unknown]
  - Product dose omission issue [Unknown]
  - Vision blurred [Unknown]
  - Blood triglycerides increased [Unknown]
  - Non-alcoholic steatohepatitis [Unknown]
  - Diabetic neuropathy [Unknown]
  - Nonalcoholic fatty liver disease [Unknown]
  - Hyperglycaemia [Unknown]
